FAERS Safety Report 8420699 (Version 3)
Quarter: 2014Q1

REPORT INFORMATION
  Report Type: Report from Study
  Country: IT (occurrence: IT)
  Receive Date: 20120222
  Receipt Date: 20140219
  Transmission Date: 20141002
  Serious: Yes (Death)
  Sender: FDA-Public Use
  Company Number: IT-ALEXION PHARMACEUTICALS INC.-A201200257

PATIENT
  Age: 71 Year
  Sex: Male

DRUGS (6)
  1. SOLIRIS [Suspect]
     Indication: HAEMOLYTIC URAEMIC SYNDROME
     Dosage: 900 MG, QW
     Route: 042
     Dates: start: 20111121
  2. SOLIRIS [Suspect]
     Indication: OFF LABEL USE
  3. ANTIBIOTICS [Concomitant]
     Indication: PNEUMONIA
  4. ANTIMYCOTICS FOR SYSTEMIC USE [Concomitant]
     Indication: PNEUMONIA
  5. CARDIAC THERAPY [Concomitant]
  6. PLASMA [Concomitant]

REACTIONS (3)
  - Bronchopulmonary aspergillosis [Fatal]
  - Pneumonia [Fatal]
  - Off label use [Unknown]
